FAERS Safety Report 15768775 (Version 1)
Quarter: 2018Q4

REPORT INFORMATION
  Report Type: Spontaneous
  Country: US (occurrence: US)
  Receive Date: 20181228
  Receipt Date: 20181228
  Transmission Date: 20190205
  Serious: No
  Sender: FDA-Public Use
  Company Number: US-BIOGEN-2018BI00673311

PATIENT
  Sex: Female

DRUGS (1)
  1. AVONEX [Suspect]
     Active Substance: INTERFERON BETA-1A
     Indication: MULTIPLE SCLEROSIS
     Route: 065
     Dates: start: 20000609

REACTIONS (7)
  - Blood potassium decreased [Not Recovered/Not Resolved]
  - Vision blurred [Unknown]
  - Gastrooesophageal reflux disease [Unknown]
  - Memory impairment [Unknown]
  - Fatigue [Unknown]
  - Arthropathy [Not Recovered/Not Resolved]
  - Emotional distress [Unknown]
